FAERS Safety Report 9641528 (Version 4)
Quarter: 2014Q3

REPORT INFORMATION
  Report Type: Spontaneous
  Country: US (occurrence: US)
  Receive Date: 20131023
  Receipt Date: 20140819
  Transmission Date: 20150326
  Serious: Yes (Other)
  Sender: FDA-Public Use
  Company Number: US-TEVA-439806USA

PATIENT
  Sex: Female

DRUGS (5)
  1. SALINE NASAL SPRAY [Concomitant]
     Active Substance: SODIUM CHLORIDE
  2. LORATADINE. [Concomitant]
     Active Substance: LORATADINE
     Dosage: 10 MILLIGRAM DAILY;
     Dates: start: 20131031, end: 20131127
  3. PARAGARD T380A [Suspect]
     Active Substance: COPPER
     Indication: CONTRACEPTION
     Route: 015
  4. PRENATAL VITAMINS [Concomitant]
     Active Substance: VITAMINS
     Dates: start: 20130923
  5. RANITIDINE [Concomitant]
     Active Substance: RANITIDINE\RANITIDINE HYDROCHLORIDE
     Dosage: 300 MILLIGRAM DAILY;
     Dates: start: 20130912

REACTIONS (2)
  - Drug ineffective [Unknown]
  - Pregnancy on contraceptive [Unknown]
